FAERS Safety Report 7397381-6 (Version None)
Quarter: 2011Q2

REPORT INFORMATION
  Report Type: 
  Country: None (occurrence: None)
  Receive Date: 20110406
  Receipt Date: 20110405
  Transmission Date: 20111010
  Serious: No
  Sender: FDA-Public Use
  Company Number: US-PFIZER INC-2011075534

PATIENT
  Sex: Female
  Weight: 88.435 kg

DRUGS (3)
  1. ALPRAZOLAM [Suspect]
     Indication: SLEEP DISORDER
     Dosage: 0.5 MG, UNK
     Route: 048
  2. PROZAC [Concomitant]
     Indication: DEPRESSION
     Dosage: UNK
     Route: 048
     Dates: start: 20090101
  3. WELLBUTRIN XL [Concomitant]
     Dosage: UNK
     Route: 048

REACTIONS (2)
  - INSOMNIA [None]
  - DRUG INEFFECTIVE [None]
